FAERS Safety Report 17228532 (Version 1)
Quarter: 2020Q1

REPORT INFORMATION
  Report Type: Report from Study
  Country: JP (occurrence: JP)
  Receive Date: 20200103
  Receipt Date: 20200103
  Transmission Date: 20200409
  Serious: Yes (Hospitalization)
  Sender: FDA-Public Use
  Company Number: JP-TEVA-2019-JP-1162886

PATIENT
  Age: 45 Year
  Sex: Female

DRUGS (2)
  1. PACLITAXEL. [Suspect]
     Active Substance: PACLITAXEL
     Indication: CERVIX CARCINOMA
     Dosage: 6 CYCLES OF PACLITAXEL PLUS CARBOPLATIN FOLLOWED BY 6 CYCLES OF DOSE-DENSE PACLITAXEL PLUS CARBOP...
     Route: 065
  2. CARBOPLATIN. [Suspect]
     Active Substance: CARBOPLATIN
     Indication: OVARIAN CANCER STAGE IV
     Dosage: 6 CYCLES OF PACLITAXEL PLUS CARBOPLATIN FOLLOWED BY 6 CYCLES OF DOSE-DENSE PACLITAXEL PLUS CARBOP...
     Route: 065

REACTIONS (1)
  - Clostridium difficile infection [Recovered/Resolved]
